FAERS Safety Report 8537388-6 (Version None)
Quarter: 2012Q3

REPORT INFORMATION
  Report Type: 
  Country: None (occurrence: None)
  Receive Date: 20120725
  Receipt Date: 20120723
  Transmission Date: 20120928
  Serious: Yes (Disabling)
  Sender: FDA-Public Use
  Company Number: US-PFIZER INC-2012141831

PATIENT
  Sex: Male
  Weight: 86.17 kg

DRUGS (10)
  1. LYRICA [Suspect]
     Dosage: 300 MG , 3X/DAY
     Route: 048
     Dates: start: 20100101
  2. OXYCODONE [Concomitant]
     Dosage: 15 MG, AS NEEDED
  3. VALIUM [Concomitant]
     Dosage: 10 MG, AS NEEDED
  4. MS CONTIN [Concomitant]
     Dosage: 100 MG, 3X/DAY
  5. SERTRALINE [Concomitant]
     Indication: DEPRESSION
     Dosage: 200 MG, 1X/DAY
  6. FENTANYL [Concomitant]
     Dosage: UNK
  7. TRAZODONE [Concomitant]
     Dosage: 100 MG, 1X/DAY
  8. LIPITOR [Suspect]
     Indication: BLOOD CHOLESTEROL INCREASED
     Dosage: 80 MG, 1X/DAY
     Route: 048
  9. LYRICA [Suspect]
     Indication: PAIN
     Dosage: 100 MG, 3X/DAY
     Route: 048
     Dates: start: 20100101, end: 20100101
  10. METHADONE [Concomitant]
     Dosage: 10 MG, 2X/DAY

REACTIONS (4)
  - BEDRIDDEN [None]
  - PAIN [None]
  - DYSSTASIA [None]
  - FALL [None]
